FAERS Safety Report 18052836 (Version 1)
Quarter: 2020Q3

REPORT INFORMATION
  Report Type: Spontaneous
  Country: JP (occurrence: JP)
  Receive Date: 20200722
  Receipt Date: 20200722
  Transmission Date: 20201103
  Serious: Yes (Hospitalization)
  Sender: FDA-Public Use
  Company Number: JP-SUN PHARMACEUTICAL INDUSTRIES LTD-2020RR-254466

PATIENT
  Age: 89 Year
  Sex: Female

DRUGS (4)
  1. LORATADINE. [Suspect]
     Active Substance: LORATADINE
     Indication: TRIGEMINAL NERVE DISORDER
     Dosage: 20 MILLIGRAM, DAILY
     Route: 048
  2. FEXOFENADINE [Suspect]
     Active Substance: FEXOFENADINE HYDROCHLORIDE
     Indication: TRIGEMINAL NERVE DISORDER
     Dosage: 60 MILLIGRAM, QD
     Route: 065
  3. ACICLOVIR [Suspect]
     Active Substance: ACYCLOVIR
     Indication: PRODUCT USED FOR UNKNOWN INDICATION
     Dosage: 250 MILLIGRAM, BID, FOR 7 DAYS
     Route: 042
  4. MECOBALAMIN [Suspect]
     Active Substance: METHYLCOBALAMIN
     Indication: PRODUCT USED FOR UNKNOWN INDICATION
     Dosage: 500 MICROGRAM, TID
     Route: 048

REACTIONS (4)
  - Trigeminal nerve disorder [Recovering/Resolving]
  - Post herpetic neuralgia [Recovering/Resolving]
  - Drug ineffective [Unknown]
  - Dizziness [Unknown]
